FAERS Safety Report 8333737-2 (Version None)
Quarter: 2012Q2

REPORT INFORMATION
  Report Type: 
  Country: None (occurrence: None)
  Receive Date: 20120503
  Receipt Date: 20120503
  Transmission Date: 20120825
  Serious: No
  Sender: FDA-Public Use
  Company Number: None

PATIENT
  Age: 48 Year
  Sex: Male
  Weight: 86.182 kg

DRUGS (1)
  1. CRESTOR [Suspect]
     Indication: BLOOD CHOLESTEROL INCREASED
     Dosage: |DOSAGETEXT: 1 PILL||STRENGTH: 40 MG||FREQ: ONCE A DAY||ROUTE: ORAL|
     Route: 048
     Dates: start: 20111016, end: 20120501

REACTIONS (1)
  - AMNESIA [None]
